FAERS Safety Report 13181320 (Version 4)
Quarter: 2017Q3

REPORT INFORMATION
  Report Type: Spontaneous
  Country: KR (occurrence: KR)
  Receive Date: 20170202
  Receipt Date: 20170823
  Transmission Date: 20171127
  Serious: Yes (Hospitalization)
  Sender: FDA-Public Use
  Company Number: KR-009507513-1702KOR000791

PATIENT
  Age: 20 Year
  Sex: Female
  Weight: 59.7 kg

DRUGS (16)
  1. EMEND (FOSAPREPITANT DIMEGLUMINE) [Suspect]
     Active Substance: FOSAPREPITANT DIMEGLUMINE
     Indication: PROPHYLAXIS OF NAUSEA AND VOMITING
     Dosage: 150 MG, ONCE
     Route: 042
     Dates: start: 20161213, end: 20161213
  2. PENIRAMIN [Concomitant]
     Indication: PROPHYLAXIS
     Dosage: 2 MG, TID
     Route: 042
     Dates: start: 20161213, end: 20161215
  3. PETHIDINE INJECTION BP [Concomitant]
     Indication: PAIN PROPHYLAXIS
     Dosage: 50 MG, QD
     Route: 042
     Dates: start: 20161213, end: 20161215
  4. TRIDOL (TRAMADOL HYDROCHLORIDE) [Concomitant]
     Indication: PAIN PROPHYLAXIS
     Dosage: 50 MG, TID; STRENGTH: 50MG/ML
     Route: 042
     Dates: start: 20161213, end: 20161215
  5. MACPERAN [Concomitant]
     Active Substance: METOCLOPRAMIDE HYDROCHLORIDE
     Indication: PROPHYLAXIS OF NAUSEA AND VOMITING
     Dosage: 20 MG, TID
     Route: 042
     Dates: start: 20161213, end: 20161213
  6. COMBIFLEX PERI [Concomitant]
     Indication: NUTRITIONAL SUPPLEMENTATION
     Dosage: 1100 ML, ONCE
     Route: 042
     Dates: start: 20161214, end: 20161214
  7. MACPERAN [Concomitant]
     Active Substance: METOCLOPRAMIDE HYDROCHLORIDE
     Dosage: 10 MG, TID
     Route: 042
     Dates: start: 20161214, end: 20161215
  8. ALOXI [Concomitant]
     Active Substance: PALONOSETRON HYDROCHLORIDE
     Indication: PROPHYLAXIS OF NAUSEA AND VOMITING
     Dosage: 0.25 MG, ONCE
     Route: 042
     Dates: start: 20161213, end: 20161213
  9. CEFOTAXIME SODIUM [Concomitant]
     Active Substance: CEFOTAXIME SODIUM
     Indication: INFECTION PROPHYLAXIS
     Dosage: 2000 MG, TID
     Route: 042
     Dates: start: 20161215, end: 20161216
  10. NEXIUM [Concomitant]
     Active Substance: ESOMEPRAZOLE MAGNESIUM
     Indication: GASTROOESOPHAGEAL REFLUX PROPHYLAXIS
     Dosage: 20 MG, QD
     Route: 048
     Dates: start: 20161214, end: 20161215
  11. PETHIDINE INJECTION BP [Concomitant]
     Dosage: 50 MG, ONCE
     Route: 030
     Dates: start: 20161213, end: 20161213
  12. TAMIPOOL [Concomitant]
     Active Substance: VITAMINS
     Indication: VITAMIN SUPPLEMENTATION
     Dosage: 5 ML, ONCE
     Route: 042
     Dates: start: 20161214, end: 20161214
  13. CISPLAN [Concomitant]
     Active Substance: CISPLATIN
     Indication: HEPATOCELLULAR CARCINOMA
     Dosage: 120 MG, ONCE (CYCLE 1); STRENGHT: 10MG/20ML
     Route: 013
     Dates: start: 20161213, end: 20161213
  14. DEXAMETHASONE SODIUM PHOSPHATE. [Concomitant]
     Active Substance: DEXAMETHASONE SODIUM PHOSPHATE
     Indication: PROPHYLAXIS OF NAUSEA AND VOMITING
     Dosage: 5 MG, ONCE; STRENGTH: 5MG/ML
     Route: 042
     Dates: start: 20161213, end: 20161213
  15. DEXAMETHASONE. [Concomitant]
     Active Substance: DEXAMETHASONE
     Indication: PROPHYLAXIS OF NAUSEA AND VOMITING
     Dosage: 2 TABLET, QD
     Route: 048
     Dates: start: 20161214, end: 20161215
  16. NEXIUM I.V. [Concomitant]
     Active Substance: ESOMEPRAZOLE SODIUM
     Indication: GASTROOESOPHAGEAL REFLUX PROPHYLAXIS
     Dosage: 40 MG, ONCE
     Route: 042
     Dates: start: 20161213, end: 20161213

REACTIONS (1)
  - Pyrexia [Recovered/Resolved]

NARRATIVE: CASE EVENT DATE: 20161215
